FAERS Safety Report 22306953 (Version 1)
Quarter: 2023Q2

REPORT INFORMATION
  Report Type: Spontaneous
  Country: US (occurrence: None)
  Receive Date: 20230511
  Receipt Date: 20230511
  Transmission Date: 20230722
  Serious: No
  Sender: FDA-Public Use
  Company Number: US-ROCHE-3083429

PATIENT
  Sex: Male

DRUGS (2)
  1. OCREVUS [Suspect]
     Active Substance: OCRELIZUMAB
     Indication: Relapsing multiple sclerosis
     Route: 042
     Dates: start: 201803
  2. COVID-19 VACCINE [Concomitant]

REACTIONS (5)
  - Hypoaesthesia [Unknown]
  - Urinary incontinence [Unknown]
  - Fatigue [Recovered/Resolved]
  - Peroneal nerve palsy [Unknown]
  - Ocular icterus [Recovered/Resolved]
